FAERS Safety Report 8774186 (Version 1)
Quarter: 2012Q4

REPORT INFORMATION
  Report Type: 
  Country: FR (occurrence: FR)
  Receive Date: 20120907
  Receipt Date: 20120907
  Transmission Date: 20130627
  Serious: Yes (Death, Hospitalization, Other)
  Sender: FDA-Public Use
  Company Number: PHHY2012FR077906

PATIENT
  Age: 90 Year
  Sex: Male

DRUGS (10)
  1. TAREG [Suspect]
     Dosage: 80 mg, QD
  2. LASILIX [Suspect]
     Dosage: 40 mg, QD
  3. MICARDIS [Suspect]
     Dosage: 1 DF, QD
  4. DEROXAT [Concomitant]
     Dosage: 20 mg, UNK
  5. KARDEGIC [Concomitant]
     Dosage: 160 mg, UNK
  6. ELISOR [Concomitant]
     Dosage: 20 mg, UNK
  7. COUMADINE [Concomitant]
     Dosage: 2 mg, UNK
  8. KALEORID [Concomitant]
     Dosage: 1000 mg, UNK
  9. RIVOTRIL [Concomitant]
     Dosage: UNK UKN, UNK
  10. VESIRIG [Concomitant]
     Indication: BLADDER IRRIGATION
     Dosage: UNK UKN, UNK

REACTIONS (13)
  - Clostridium difficile colitis [Fatal]
  - Renal failure acute [Fatal]
  - Hyperkalaemia [Fatal]
  - Blood creatinine increased [Fatal]
  - Cardiac failure [Fatal]
  - Peripheral ischaemia [Fatal]
  - General physical health deterioration [Unknown]
  - Gastroenteritis [Unknown]
  - Dehydration [Unknown]
  - Vomiting [Unknown]
  - Diarrhoea [Unknown]
  - Inflammation [Unknown]
  - C-reactive protein increased [Unknown]
